FAERS Safety Report 4425781-2 (Version None)
Quarter: 2004Q3

REPORT INFORMATION
  Report Type: 
  Country: None (occurrence: None)
  Receive Date: 20040810
  Receipt Date: 20040727
  Transmission Date: 20050211
  Serious: Yes (Life-Threatening, Hospitalization)
  Sender: FDA-Public Use
  Company Number: 2004EU001431

PATIENT
  Age: 3 Year
  Sex: Male
  Weight: 13 kg

DRUGS (10)
  1. PROGRAF [Suspect]
     Indication: RENAL TRANSPLANT
     Dosage: 7.00 MG , ORAL
     Route: 048
     Dates: start: 20040617
  2. ATENOLOL [Suspect]
     Dosage: 30.00 MG,ORAL
     Route: 048
     Dates: start: 20040621, end: 20040702
  3. AZATHIOPRINE [Suspect]
     Dosage: 25.00 MG,ORAL
     Route: 048
     Dates: start: 20040617
  4. GANCICLOVIR SODIUM [Suspect]
     Dosage: 250.00, ORAL
     Route: 048
     Dates: start: 20040617
  5. PREDNISOLONE [Concomitant]
  6. OMEPRAZOLE [Concomitant]
  7. ASPIRIN [Concomitant]
  8. COTRIMOXAZOL ^ALIUD ^ (SULFAMETHAXOZALE, TRIMETHROPRIM) [Concomitant]
  9. AMLODIPINE [Concomitant]
  10. DOXAZOSIN (DOXAZOSIN) [Concomitant]

REACTIONS (1)
  - ATRIOVENTRICULAR BLOCK COMPLETE [None]
